FAERS Safety Report 12622921 (Version 1)
Quarter: 2016Q3

REPORT INFORMATION
  Report Type: Spontaneous
  Country: US (occurrence: US)
  Receive Date: 20160804
  Receipt Date: 20160804
  Transmission Date: 20161109
  Serious: Yes (Disabling, Other)
  Sender: FDA-Public Use
  Company Number: GXBR2016US002465

PATIENT
  Age: 76 Year
  Sex: Female

DRUGS (1)
  1. AMIODARONE HYDROCHLORIDE. [Suspect]
     Active Substance: AMIODARONE HYDROCHLORIDE
     Indication: ATRIAL FIBRILLATION
     Dosage: 200 MG, UNK
     Route: 048
     Dates: start: 201210, end: 201407

REACTIONS (14)
  - Decreased activity [Unknown]
  - Disturbance in attention [Unknown]
  - Asthenia [Unknown]
  - Interstitial lung disease [Unknown]
  - Dyspnoea [Unknown]
  - Cough [Unknown]
  - Nervousness [Unknown]
  - Irritability [Unknown]
  - Pulmonary fibrosis [Unknown]
  - Wheezing [Unknown]
  - Restlessness [Unknown]
  - Depression [Unknown]
  - Fatigue [Unknown]
  - Off label use [Unknown]

NARRATIVE: CASE EVENT DATE: 201407
